FAERS Safety Report 6968150-3 (Version None)
Quarter: 2010Q3

REPORT INFORMATION
  Report Type: 
  Country: None (occurrence: None)
  Receive Date: 20100901
  Receipt Date: 20100818
  Transmission Date: 20110219
  Serious: Yes (Hospitalization)
  Sender: FDA-Public Use
  Company Number: 2010PL000071

PATIENT
  Age: 52 Year
  Sex: Female
  Weight: 65.7716 kg

DRUGS (3)
  1. LOTRONEX [Suspect]
     Indication: IRRITABLE BOWEL SYNDROME
     Dosage: 1.0 MG;BID;PO
     Route: 048
     Dates: start: 20100513, end: 20100530
  2. SYNTHROID [Concomitant]
  3. BENICAR [Concomitant]

REACTIONS (3)
  - RENAL ATROPHY [None]
  - RENAL HYPERTROPHY [None]
  - SMALL INTESTINAL OBSTRUCTION [None]
